FAERS Safety Report 11538694 (Version 2)
Quarter: 2016Q1

REPORT INFORMATION
  Report Type: Spontaneous
  Country: US (occurrence: US)
  Receive Date: 20150923
  Receipt Date: 20160113
  Transmission Date: 20160525
  Serious: Yes (Other)
  Sender: FDA-Public Use
  Company Number: US-ALEXION PHARMACEUTICALS INC-A201503552

PATIENT
  Sex: Female

DRUGS (18)
  1. RITUXAN [Suspect]
     Active Substance: RITUXIMAB
     Dosage: UNK
     Route: 065
     Dates: start: 20150226, end: 20150226
  2. TACROLIMUS. [Concomitant]
     Active Substance: TACROLIMUS
     Dosage: 1MG AM AND 0.5MG PM
     Route: 065
     Dates: start: 20151230
  3. CELLCEPT [Concomitant]
     Active Substance: MYCOPHENOLATE MOFETIL\MYCOPHENOLATE MOFETIL HYDROCHLORIDE
     Indication: PRODUCT USED FOR UNKNOWN INDICATION
     Dosage: UNK
     Route: 065
     Dates: start: 20140709, end: 20150226
  4. RITUXAN [Suspect]
     Active Substance: RITUXIMAB
     Indication: PRODUCT USED FOR UNKNOWN INDICATION
     Dosage: UNK
     Route: 065
     Dates: start: 20120110, end: 20120110
  5. TACROLIMUS. [Concomitant]
     Active Substance: TACROLIMUS
     Dosage: 1 MG, BID
     Route: 065
     Dates: start: 20150927
  6. TACROLIMUS. [Concomitant]
     Active Substance: TACROLIMUS
     Dosage: 2 MG, BID
     Route: 065
     Dates: start: 20150507
  7. RITUXAN [Suspect]
     Active Substance: RITUXIMAB
     Dosage: UNK
     Route: 065
     Dates: start: 20120118, end: 20120118
  8. CELLCEPT [Concomitant]
     Active Substance: MYCOPHENOLATE MOFETIL\MYCOPHENOLATE MOFETIL HYDROCHLORIDE
     Dosage: UNK
     Route: 065
     Dates: start: 20150316
  9. SOLIRIS [Suspect]
     Active Substance: ECULIZUMAB
     Dosage: 1200 MG, Q2W
     Route: 042
     Dates: start: 20141121, end: 20141231
  10. SOLIRIS [Suspect]
     Active Substance: ECULIZUMAB
     Dosage: 1200 MG, Q2W
     Route: 042
     Dates: start: 20151216
  11. CYTOXAN [Suspect]
     Active Substance: CYCLOPHOSPHAMIDE
     Indication: PRODUCT USED FOR UNKNOWN INDICATION
     Dosage: UNK
     Route: 065
     Dates: start: 20150227
  12. RITUXAN [Suspect]
     Active Substance: RITUXIMAB
     Dosage: UNK
     Route: 065
     Dates: start: 20120124, end: 20120124
  13. TACROLIMUS. [Concomitant]
     Active Substance: TACROLIMUS
     Dosage: 1.5 MG, BID
     Route: 065
     Dates: start: 20150717
  14. SOLIRIS [Suspect]
     Active Substance: ECULIZUMAB
     Dosage: 900 MG, QW
     Route: 042
     Dates: start: 20151104, end: 20151125
  15. SOLIRIS [Suspect]
     Active Substance: ECULIZUMAB
     Indication: HAEMOLYTIC URAEMIC SYNDROME
     Dosage: 900 MG, QW
     Route: 042
     Dates: start: 20141024, end: 20141114
  16. RITUXAN [Suspect]
     Active Substance: RITUXIMAB
     Dosage: UNK
     Route: 065
     Dates: start: 20120131, end: 20120131
  17. PREDNISONE. [Concomitant]
     Active Substance: PREDNISONE
     Indication: LUPUS NEPHRITIS
     Dosage: UNK
     Route: 065
  18. TACROLIMUS. [Concomitant]
     Active Substance: TACROLIMUS
     Indication: PRODUCT USED FOR UNKNOWN INDICATION
     Dosage: 0.5 MG, BID
     Route: 065
     Dates: start: 20150418

REACTIONS (6)
  - Vomiting [Unknown]
  - Rash [Unknown]
  - Pyrexia [Unknown]
  - Anaemia [Not Recovered/Not Resolved]
  - Infusion related reaction [Unknown]
  - Nausea [Unknown]

NARRATIVE: CASE EVENT DATE: 20150227
